FAERS Safety Report 23890266 (Version 1)
Quarter: 2024Q2

REPORT INFORMATION
  Report Type: Report from Study
  Country: CA (occurrence: CA)
  Receive Date: 20240523
  Receipt Date: 20240523
  Transmission Date: 20240715
  Serious: Yes (Other)
  Sender: FDA-Public Use
  Company Number: CA-BEIGENE-BGN-2024-006987

PATIENT

DRUGS (2)
  1. BRUKINSA [Suspect]
     Active Substance: ZANUBRUTINIB
     Indication: Marginal zone lymphoma
     Dosage: 320 MILLIGRAM DAILY
     Route: 048
     Dates: start: 20240213, end: 20240429
  2. BRUKINSA [Suspect]
     Active Substance: ZANUBRUTINIB
     Dosage: 320 MILLIGRAM DAILY
     Route: 048
     Dates: start: 20240517

REACTIONS (3)
  - Atrial fibrillation [Unknown]
  - Neoplasm progression [Unknown]
  - Palpitations [Unknown]

NARRATIVE: CASE EVENT DATE: 20240401
